FAERS Safety Report 8523227-6 (Version None)
Quarter: 2012Q3

REPORT INFORMATION
  Report Type: 
  Country: None (occurrence: None)
  Receive Date: 20120720
  Receipt Date: 20120716
  Transmission Date: 20120928
  Serious: No
  Sender: FDA-Public Use
  Company Number: US-PFIZER INC-2012170791

PATIENT
  Sex: Female
  Weight: 121 kg

DRUGS (19)
  1. TIKOSYN [Suspect]
     Dosage: 250 UG, 2X/DAY
     Dates: start: 20120101
  2. TIKOSYN [Suspect]
     Dosage: 500 UG, DAILY
     Dates: start: 20120101
  3. DIGOXIN [Concomitant]
     Dosage: 0.125 MG, DAILY
  4. LASIX [Concomitant]
     Indication: DIURETIC THERAPY
     Dosage: 40 MG, 2X/DAY
  5. VITAMIN E [Concomitant]
     Dosage: 400 IU, UNK
  6. NORVASC [Concomitant]
     Dosage: 5 MG, DAILY
  7. POTASSIUM [Concomitant]
     Dosage: 180 MG, UNK
  8. MULTI-VITAMINS [Concomitant]
     Dosage: UNK
  9. GABAPENTIN [Concomitant]
     Dosage: UNK
  10. TYLENOL DOUBLE STRENGTH [Concomitant]
     Dosage: UNK
  11. SYNTHROID [Concomitant]
     Indication: THYROID DISORDER
     Dosage: 100 UG, DAILY
  12. CALCIUM [Concomitant]
     Dosage: 500 MG, UNK
  13. WARFARIN SODIUM [Concomitant]
     Indication: ANTICOAGULANT THERAPY
     Dosage: UNK,DAILY
  14. CARVEDILOL [Concomitant]
     Dosage: 12.5 MG, 2X/DAY
  15. FIBRE, DIETARY [Concomitant]
     Dosage: UNK
  16. TIKOSYN [Suspect]
     Indication: ATRIAL FIBRILLATION
     Dosage: UNK
     Dates: end: 20120301
  17. ASCORBIC ACID [Concomitant]
     Dosage: UNK
  18. MAGNESIUM OXIDE [Concomitant]
     Dosage: UNK
  19. PREDNISONE [Concomitant]
     Dosage: 5 MG, DAILY

REACTIONS (3)
  - CIRCUMSTANCE OR INFORMATION CAPABLE OF LEADING TO MEDICATION ERROR [None]
  - ATRIAL FLUTTER [None]
  - CARDIAC DISORDER [None]
